FAERS Safety Report 9455595 (Version 3)
Quarter: 2013Q3

REPORT INFORMATION
  Report Type: Spontaneous
  Country: US (occurrence: US)
  Receive Date: 20130813
  Receipt Date: 20130917
  Transmission Date: 20140515
  Serious: No
  Sender: FDA-Public Use
  Company Number: US-PFIZER INC-2013231975

PATIENT
  Age: 56 Year
  Sex: Male

DRUGS (2)
  1. RAPAMUNE [Suspect]
     Indication: LUNG DISORDER
     Dosage: 2 MG, UNK
     Dates: start: 20130102
  2. VFEND [Interacting]
     Dosage: UNK

REACTIONS (3)
  - Drug interaction [Unknown]
  - Drug level decreased [Unknown]
  - Off label use [Unknown]
